FAERS Safety Report 13479976 (Version 3)
Quarter: 2018Q1

REPORT INFORMATION
  Report Type: Report from Study
  Country: US (occurrence: US)
  Receive Date: 20170424
  Receipt Date: 20180117
  Transmission Date: 20180508
  Serious: No
  Sender: FDA-Public Use
  Company Number: US-AMGEN-USASL2017039742

PATIENT
  Age: 75 Year
  Sex: Male

DRUGS (1)
  1. REPATHA [Suspect]
     Active Substance: EVOLOCUMAB
     Indication: HYPERCHOLESTEROLAEMIA
     Dosage: 140 MG, TWICE A MONTH
     Route: 065
     Dates: start: 201601

REACTIONS (4)
  - Skin ulcer [Recovered/Resolved]
  - Injection site exfoliation [Unknown]
  - Paraesthesia [Unknown]
  - Scab [Recovered/Resolved]

NARRATIVE: CASE EVENT DATE: 201701
